FAERS Safety Report 19110913 (Version 5)
Quarter: 2021Q3

REPORT INFORMATION
  Report Type: Spontaneous
  Country: NL (occurrence: NL)
  Receive Date: 20210408
  Receipt Date: 20210923
  Transmission Date: 20211014
  Serious: Yes (Other)
  Sender: FDA-Public Use
  Company Number: NVSC2021NL067849

PATIENT
  Age: 23 Year
  Sex: Male

DRUGS (11)
  1. PROMETHAZINE [Suspect]
     Active Substance: PROMETHAZINE HYDROCHLORIDE
     Indication: AUTISM SPECTRUM DISORDER
     Dosage: UNK, SHORT?LASTING PHARMACOLOGICAL INTERVENTION
     Route: 065
  2. METHYLPHENIDATE. [Suspect]
     Active Substance: METHYLPHENIDATE
     Indication: AGGRESSION
  3. METHYLPHENIDATE. [Suspect]
     Active Substance: METHYLPHENIDATE
     Indication: AUTISM SPECTRUM DISORDER
     Dosage: UNK, SHORT?LASTING PHARMACOLOGICAL INTERVENTION
     Route: 065
  4. OMEPRAZOLE. [Concomitant]
     Active Substance: OMEPRAZOLE
     Indication: PRODUCT USED FOR UNKNOWN INDICATION
     Dosage: 20 MG
     Route: 065
  5. PHENOBARBITAL. [Suspect]
     Active Substance: PHENOBARBITAL
     Indication: AUTISM SPECTRUM DISORDER
     Dosage: UNK, SHORT?LASTING PHARMACOLOGICAL INTERVENTION
     Route: 065
  6. PHENOBARBITAL. [Suspect]
     Active Substance: PHENOBARBITAL
     Indication: SYMPTOMATIC TREATMENT
  7. PHENOBARBITAL. [Suspect]
     Active Substance: PHENOBARBITAL
     Indication: AGGRESSION
  8. HYDROXYZINE [Concomitant]
     Active Substance: HYDROXYZINE HYDROCHLORIDE
     Indication: ANTIALLERGIC THERAPY
     Dosage: 25 MG, QD
     Route: 065
  9. METHYLPHENIDATE. [Suspect]
     Active Substance: METHYLPHENIDATE
     Indication: SYMPTOMATIC TREATMENT
  10. PROMETHAZINE [Suspect]
     Active Substance: PROMETHAZINE HYDROCHLORIDE
     Indication: AGGRESSION
  11. PROMETHAZINE [Suspect]
     Active Substance: PROMETHAZINE HYDROCHLORIDE
     Indication: SYMPTOMATIC TREATMENT

REACTIONS (10)
  - Drug ineffective [Unknown]
  - Product use in unapproved indication [Unknown]
  - Autism spectrum disorder [Recovering/Resolving]
  - Disinhibited social engagement disorder of childhood [Unknown]
  - Intellectual disability [Recovering/Resolving]
  - Aggression [Unknown]
  - Condition aggravated [Recovering/Resolving]
  - Urinary incontinence [Recovered/Resolved]
  - Sleep disorder [Recovered/Resolved]
  - Diarrhoea [Recovering/Resolving]
